FAERS Safety Report 5038694-2 (Version None)
Quarter: 2006Q2

REPORT INFORMATION
  Report Type: 
  Country: None (occurrence: None)
  Receive Date: 20060623
  Receipt Date: 20060619
  Transmission Date: 20061013
  Serious: Yes (Death, Hospitalization)
  Sender: FDA-Public Use
  Company Number: HQWYE298220JUN06

PATIENT
  Age: 84 Year
  Sex: Female

DRUGS (10)
  1. EFFEXOR XR [Suspect]
     Indication: ANXIETY
     Route: 048
     Dates: start: 20060201
  2. LASIX [Concomitant]
  3. COLCHICUM JTL LIQ [Concomitant]
  4. ACETAMINOPHEN [Concomitant]
  5. PLAVIX [Concomitant]
  6. ALLOPURINOL [Concomitant]
  7. FOSAMAX [Concomitant]
  8. LOSEC (OMEPRAZOLE) [Concomitant]
  9. DURAGESIC-100 [Suspect]
     Indication: PAIN
     Dosage: ^HIGH DOSES^
  10. FORTEO [Suspect]
     Indication: OSTEOPOROSIS
     Dosage: 20 UG 1X PER 1 DAY
     Dates: start: 20060424

REACTIONS (14)
  - ABDOMINAL PAIN UPPER [None]
  - ASPARTATE AMINOTRANSFERASE INCREASED [None]
  - ASTHENIA [None]
  - BLOOD BILIRUBIN INCREASED [None]
  - CONSTIPATION [None]
  - DEHYDRATION [None]
  - DIARRHOEA [None]
  - ELECTROLYTE IMBALANCE [None]
  - HYPOGLYCAEMIA [None]
  - HYPOKALAEMIA [None]
  - HYPOMAGNESAEMIA [None]
  - HYPOTENSION [None]
  - JAUNDICE [None]
  - ORAL INTAKE REDUCED [None]
